FAERS Safety Report 5248455-7 (Version None)
Quarter: 2007Q1

REPORT INFORMATION
  Report Type: 
  Country: None (occurrence: None)
  Receive Date: 20070227
  Receipt Date: 20070215
  Transmission Date: 20070707
  Serious: Yes (Other)
  Sender: FDA-Public Use
  Company Number: JP-PFIZER INC-2007012912

PATIENT

DRUGS (1)
  1. SULFASALAZINE [Suspect]
     Route: 048

REACTIONS (3)
  - CEREBRAL INFARCTION [None]
  - MYOCARDIAL INFARCTION [None]
  - THROMBOSIS [None]
